FAERS Safety Report 8599488-4 (Version None)
Quarter: 2012Q3

REPORT INFORMATION
  Report Type: 
  Country: None (occurrence: None)
  Receive Date: 20120816
  Receipt Date: 20120501
  Transmission Date: 20120928
  Serious: No
  Sender: FDA-Public Use
  Company Number: US-ALLERGAN-1206197US

PATIENT
  Age: 40 Year
  Sex: Female

DRUGS (1)
  1. LASTACAFT [Suspect]
     Indication: HYPERSENSITIVITY
     Dosage: 3 INSTALLATIONS UNSPECIFIED DAYS
     Route: 047

REACTIONS (3)
  - OCULAR HYPERAEMIA [None]
  - HYPERAEMIA [None]
  - EYE IRRITATION [None]
